FAERS Safety Report 10061228 (Version 3)
Quarter: 2014Q2

REPORT INFORMATION
  Report Type: Spontaneous
  Country: US (occurrence: US)
  Receive Date: 20140407
  Receipt Date: 20140528
  Transmission Date: 20141212
  Serious: Yes (Hospitalization)
  Sender: FDA-Public Use
  Company Number: US-BEH-2011027602

PATIENT
  Age: 65 Year
  Sex: Male
  Weight: 69 kg

DRUGS (3)
  1. ZEMAIRA [Suspect]
     Indication: ALPHA-1 ANTI-TRYPSIN DEFICIENCY
     Dosage: 60 MG/KG (+/- 10%) WEEKLY, NOT TO EXCEED 5.6 ML/MIN
     Route: 042
     Dates: start: 20070913
  2. ADVAIR [Concomitant]
  3. SPIRIVA [Concomitant]

REACTIONS (2)
  - Pneumonia [Recovered/Resolved]
  - Dyspnoea [Recovered/Resolved]
